FAERS Safety Report 4522208-7 (Version None)
Quarter: 2004Q4

REPORT INFORMATION
  Report Type: 
  Country: None (occurrence: None)
  Receive Date: 20041207
  Receipt Date: 20041124
  Transmission Date: 20050328
  Serious: Yes (Hospitalization)
  Sender: FDA-Public Use
  Company Number: 210582

PATIENT
  Age: 8 Year
  Sex: Male
  Weight: 24.9 kg

DRUGS (4)
  1. NUTROPIN [Suspect]
     Indication: GROWTH HORMONE DEFICIENCY
     Dosage: 0.6 MG, QD, SUBCUTANEOUS
     Route: 058
     Dates: start: 20010822, end: 20040810
  2. LEVOXYL [Concomitant]
  3. PERIACTIN [Concomitant]
  4. PREVACID [Concomitant]

REACTIONS (3)
  - DISEASE RECURRENCE [None]
  - OSTEOCHONDROMA [None]
  - PAIN [None]
